FAERS Safety Report 14450181 (Version 1)
Quarter: 2018Q1

REPORT INFORMATION
  Report Type: Spontaneous
  Country: AT (occurrence: AT)
  Receive Date: 20180129
  Receipt Date: 20180129
  Transmission Date: 20180509
  Serious: Yes (Other)
  Sender: FDA-Public Use
  Company Number: AT-ROCHE-2056171

PATIENT
  Age: 70 Year
  Sex: Female

DRUGS (8)
  1. APREDNISLON [Suspect]
     Active Substance: PREDNISOLONE
     Indication: TEMPORAL ARTERITIS
     Route: 065
     Dates: start: 201711
  2. FORSTEO [Concomitant]
     Active Substance: TERIPARATIDE
  3. ROACTEMRA [Suspect]
     Active Substance: TOCILIZUMAB
     Indication: TEMPORAL ARTERITIS
     Route: 058
     Dates: start: 201709
  4. APREDNISLON [Suspect]
     Active Substance: PREDNISOLONE
     Route: 065
     Dates: start: 200902
  5. APREDNISLON [Suspect]
     Active Substance: PREDNISOLONE
     Route: 065
     Dates: start: 200909, end: 2011
  6. APREDNISLON [Suspect]
     Active Substance: PREDNISOLONE
     Route: 065
     Dates: start: 201601, end: 201701
  7. APREDNISLON [Suspect]
     Active Substance: PREDNISOLONE
     Route: 065
  8. APREDNISLON [Suspect]
     Active Substance: PREDNISOLONE
     Route: 065

REACTIONS (3)
  - Leukopenia [Unknown]
  - Thoracic vertebral fracture [Unknown]
  - Oral herpes [Unknown]

NARRATIVE: CASE EVENT DATE: 20171123
